FAERS Safety Report 13720910 (Version 1)
Quarter: 2017Q3

REPORT INFORMATION
  Report Type: Spontaneous
  Country: US (occurrence: US)
  Receive Date: 20170705
  Receipt Date: 20170705
  Transmission Date: 20171127
  Serious: No
  Sender: FDA-Public Use
  Company Number: None

PATIENT
  Age: 69 Year
  Sex: Female

DRUGS (7)
  1. CALCIUM [Concomitant]
     Active Substance: CALCIUM
  2. METHOTREXATE. [Suspect]
     Active Substance: METHOTREXATE
     Indication: POLYMYOSITIS
     Dates: start: 201410, end: 201412
  3. PREDNISONE (LOW DOSE) [Concomitant]
  4. FOLIC ACID. [Concomitant]
     Active Substance: FOLIC ACID
  5. AZATHIOPRINE. [Concomitant]
     Active Substance: AZATHIOPRINE
  6. ZOLOFT [Concomitant]
     Active Substance: SERTRALINE HYDROCHLORIDE
  7. ALPRAZOLAM. [Concomitant]
     Active Substance: ALPRAZOLAM

REACTIONS (9)
  - Drug-induced liver injury [None]
  - Haemangioma of liver [None]
  - Alanine aminotransferase increased [None]
  - Blood bilirubin increased [None]
  - Antinuclear antibody positive [None]
  - Blood alkaline phosphatase increased [None]
  - Fatigue [None]
  - Aspartate aminotransferase increased [None]
  - Diarrhoea [None]

NARRATIVE: CASE EVENT DATE: 20141201
